FAERS Safety Report 9465469 (Version 2)
Quarter: 2013Q3

REPORT INFORMATION
  Report Type: Spontaneous
  Country: US (occurrence: US)
  Receive Date: 20130820
  Receipt Date: 20130820
  Transmission Date: 20140515
  Serious: Yes (Other)
  Sender: FDA-Public Use
  Company Number: US-009507513-1206USA02833

PATIENT
  Age: 65 Year
  Sex: Female

DRUGS (3)
  1. FOSAMAX [Suspect]
     Dosage: UNK
     Route: 048
     Dates: start: 1995
  2. CALCIUM (UNSPECIFIED) [Concomitant]
     Dosage: UNK
  3. ETODOLAC [Concomitant]

REACTIONS (3)
  - Femur fracture [Unknown]
  - Foot fracture [Unknown]
  - Rib fracture [Unknown]
